FAERS Safety Report 9031158 (Version 2)
Quarter: 2013Q3

REPORT INFORMATION
  Report Type: Report from Study
  Country: BR (occurrence: BR)
  Receive Date: 20130123
  Receipt Date: 20130812
  Transmission Date: 20140515
  Serious: Yes (Hospitalization, Other)
  Sender: FDA-Public Use
  Company Number: BR-ELI_LILLY_AND_COMPANY-BR201301003557

PATIENT
  Age: 41 Year
  Sex: Female
  Weight: 58 kg

DRUGS (6)
  1. TERIPARATIDE [Suspect]
     Indication: OSTEOPOROSIS
     Dosage: 20 UG, QD
     Route: 058
     Dates: start: 20121111
  2. CALCIUM CARBONATE [Concomitant]
     Indication: OSTEOPOROSIS
     Dosage: UNK, UNKNOWN
     Route: 065
  3. SIMVASTATIN [Concomitant]
     Indication: BLOOD CHOLESTEROL
     Dosage: 20 MG, QD
     Route: 065
  4. LEVOID [Concomitant]
     Indication: HORMONE REPLACEMENT THERAPY
     Dosage: 50 MG, UNK
     Route: 065
  5. PROPANOLOL [Concomitant]
     Indication: TACHYCARDIA
     Dosage: 80 MG, BID
     Route: 065
  6. DIPIRONA [Concomitant]
     Dosage: UNK, PRN
     Route: 065

REACTIONS (11)
  - Device breakage [Not Recovered/Not Resolved]
  - Impaired healing [Not Recovered/Not Resolved]
  - Urinary incontinence [Not Recovered/Not Resolved]
  - Urine output increased [Not Recovered/Not Resolved]
  - Chromaturia [Not Recovered/Not Resolved]
  - Medication error [Unknown]
  - Pain [Unknown]
  - Injection site bruising [Unknown]
  - Injection site hypertrophy [Unknown]
  - Injection site mass [Unknown]
  - Bone atrophy [Unknown]
